FAERS Safety Report 9234172 (Version 1)
Quarter: 2013Q1

REPORT INFORMATION
  Report Type: Spontaneous
  Country: US (occurrence: None)
  Receive Date: 20121031
  Receipt Date: 20121031
  Transmission Date: 20140127
  Serious: No
  Sender: FDA-Public Use
  Company Number: PHEH2012US012770

PATIENT
  Age: 42 Year
  Sex: Female
  Weight: 70.3 kg

DRUGS (4)
  1. GILENYA [Suspect]
     Route: 048
     Dates: start: 20120528
  2. XANAX (ALPRAZOLAM) TABLET [Concomitant]
  3. AMBIEN (ZOLPIDEM TARTRATE) TABLET [Concomitant]
  4. ULTRAM (TRAMADOL HYDROCHLORIDE) TABLET [Concomitant]

REACTIONS (3)
  - Chest pain [None]
  - Dizziness [None]
  - Diarrhoea [None]
